FAERS Safety Report 14360647 (Version 1)
Quarter: 2018Q1

REPORT INFORMATION
  Report Type: Spontaneous
  Country: FR (occurrence: FR)
  Receive Date: 20180106
  Receipt Date: 20180106
  Transmission Date: 20180509
  Serious: Yes (Disabling)
  Sender: FDA-Public Use
  Company Number: FR-MYLANLABS-2018M1001086

PATIENT
  Age: 69 Year
  Sex: Male
  Weight: 66 kg

DRUGS (4)
  1. DERMOVAL (CLOBETASOL PROPIONATE) [Concomitant]
     Active Substance: CLOBETASOL PROPIONATE
     Indication: PRODUCT USED FOR UNKNOWN INDICATION
     Dosage: UNK
  2. FENOFIBRATE. [Suspect]
     Active Substance: FENOFIBRATE
     Indication: HYPERTRIGLYCERIDAEMIA
     Dosage: 160 MG, QD
     Route: 048
     Dates: start: 201604
  3. LEVOTHYROX 50 MICROGRAMMES, COMPRIM? S?CABLE [Suspect]
     Active Substance: LEVOTHYROXINE SODIUM
     Indication: HYPOTHYROIDISM
     Dosage: 1 DF, QD
     Route: 048
     Dates: start: 201605
  4. TARGRETIN [Suspect]
     Active Substance: BEXAROTENE
     Indication: MYCOSIS FUNGOIDES
     Dosage: 7 DF, QD
     Route: 048
     Dates: start: 201604

REACTIONS (1)
  - Facial paresis [Not Recovered/Not Resolved]

NARRATIVE: CASE EVENT DATE: 201706
